FAERS Safety Report 21820640 (Version 1)
Quarter: 2023Q1

REPORT INFORMATION
  Report Type: Report from Study
  Country: US (occurrence: US)
  Receive Date: 20230105
  Receipt Date: 20230105
  Transmission Date: 20230417
  Serious: No
  Sender: FDA-Public Use
  Company Number: US-ABBVIE-4225226

PATIENT
  Sex: Male

DRUGS (3)
  1. HUMIRA [Suspect]
     Active Substance: ADALIMUMAB
     Indication: Psoriatic arthropathy
     Dosage: FORM STRENGTH : 40/MG
     Route: 048
  2. Covid 19 Vaccine [Concomitant]
     Indication: COVID-19 immunisation
     Dosage: ONE IN ONCE
     Route: 030
  3. Covid 19 Vaccine [Concomitant]
     Indication: COVID-19 immunisation
     Dosage: BOOSTER DOSE
     Route: 030

REACTIONS (7)
  - Malaise [Unknown]
  - Cough [Recovering/Resolving]
  - Pain in extremity [Not Recovered/Not Resolved]
  - Road traffic accident [Unknown]
  - Anxiety [Unknown]
  - Nasal congestion [Unknown]
  - Musculoskeletal stiffness [Unknown]
